FAERS Safety Report 9560002 (Version 1)
Quarter: 2013Q3

REPORT INFORMATION
  Report Type: Spontaneous
  Country: US (occurrence: None)
  Receive Date: 20130906
  Receipt Date: 20130906
  Transmission Date: 20140515
  Serious: Yes (Other)
  Sender: FDA-Public Use
  Company Number: 163-POMAL-13064055

PATIENT
  Age: 58 Year
  Sex: Male

DRUGS (6)
  1. POMALYST [Suspect]
     Indication: PLASMA CELL MYELOMA
     Route: 048
     Dates: start: 20130606
  2. ACYCLOVIR (ACICLOVIR) [Concomitant]
  3. AGGRENOX (ASASANTIN) [Concomitant]
  4. GABAPENTIN (GABAPENTIN) [Concomitant]
  5. LIPITOR (ATORVASTATIN) [Concomitant]
  6. OMEPRAZOLE (OMEPRAZOLE) [Concomitant]

REACTIONS (1)
  - Neutrophil count decreased [None]
